FAERS Safety Report 12310989 (Version 4)
Quarter: 2016Q2

REPORT INFORMATION
  Report Type: Spontaneous
  Country: JP (occurrence: JP)
  Receive Date: 20160427
  Receipt Date: 20160609
  Transmission Date: 20160815
  Serious: Yes (Death, Other)
  Sender: FDA-Public Use
  Company Number: JP-009507513-1604JPN009438

PATIENT
  Age: 71 Year
  Sex: Male
  Weight: 38 kg

DRUGS (12)
  1. SUMITHRIN [Concomitant]
     Indication: ACARODERMATITIS
     Dosage: 30 ML, QD (DIVIDED DOSE FREQUENCY UNKNOWN)
     Route: 061
     Dates: start: 20160331
  2. STROMECTOL [Suspect]
     Active Substance: IVERMECTIN
     Indication: ACARODERMATITIS
  3. EURAX [Concomitant]
     Active Substance: CROTAMITON
     Dosage: DAILY DOSE UNKNOWN
     Route: 061
     Dates: start: 20160330
  4. LANSOPRAZOLE. [Suspect]
     Active Substance: LANSOPRAZOLE
     Indication: GASTRIC ULCER
     Dosage: 30 MG, QD
     Route: 048
     Dates: start: 20160316
  5. SOLCOSERYL [Concomitant]
     Active Substance: SOLCOSERYL
     Indication: GASTRIC ULCER
     Dosage: 2 ML, QD
     Route: 042
     Dates: start: 20160323
  6. FAMOTIDINE. [Concomitant]
     Active Substance: FAMOTIDINE
     Dosage: 20 MG, QD
     Route: 042
     Dates: start: 20160405
  7. PROMAC (POLAPREZINC) [Concomitant]
     Active Substance: POLAPREZINC
     Indication: GASTRIC ULCER
     Dosage: 75MG, BID
     Route: 048
     Dates: start: 20160302
  8. STROMECTOL [Suspect]
     Active Substance: IVERMECTIN
     Indication: ACARODERMATITIS
     Dosage: 9 MG, ONCE A DAY
     Route: 048
     Dates: start: 20160331, end: 20160331
  9. FERROUS SULFATE. [Concomitant]
     Active Substance: FERROUS SULFATE
     Indication: ANAEMIA
     Dosage: 105 MG, ONCE A DAY
     Route: 048
  10. FAMOTIDINE. [Concomitant]
     Active Substance: FAMOTIDINE
     Indication: GASTRIC ULCER
     Dosage: 20 MG, QD
     Route: 042
     Dates: start: 20160316, end: 20160320
  11. EPINASTINE HYDROCHLORIDE. [Concomitant]
     Active Substance: EPINASTINE HYDROCHLORIDE
     Dosage: 10 MG, QD
     Route: 048
  12. LEVOTHYROXINE SODIUM. [Concomitant]
     Active Substance: LEVOTHYROXINE SODIUM
     Indication: HYPOTHYROIDISM
     Dosage: 50 MICROGRAM, QD
     Route: 048

REACTIONS (13)
  - Pallor [Unknown]
  - Depressed level of consciousness [Recovering/Resolving]
  - Hepatic failure [Fatal]
  - Feeding disorder [Recovered/Resolved]
  - Pyrexia [Unknown]
  - Decreased appetite [Unknown]
  - Hepatic function abnormal [Fatal]
  - Decubitus ulcer [Unknown]
  - Rash pustular [Unknown]
  - Blood pressure decreased [Recovered/Resolved]
  - Sepsis [Unknown]
  - C-reactive protein increased [Unknown]
  - Asthenia [Not Recovered/Not Resolved]

NARRATIVE: CASE EVENT DATE: 2016
